FAERS Safety Report 5709233-5 (Version None)
Quarter: 2008Q2

REPORT INFORMATION
  Report Type: 
  Country: None (occurrence: None)
  Receive Date: 20080418
  Receipt Date: 20080411
  Transmission Date: 20081010
  Serious: Yes (Other)
  Sender: FDA-Public Use
  Company Number: US-BAYER-200819833NA

PATIENT
  Age: 45 Year
  Sex: Female
  Weight: 52 kg

DRUGS (1)
  1. MAGNEVIST [Suspect]
     Indication: NUCLEAR MAGNETIC RESONANCE IMAGING
     Dosage: TOTAL DAILY DOSE: 10 ML  UNIT DOSE: 15 ML
     Route: 042
     Dates: start: 20080410, end: 20080410

REACTIONS (5)
  - EYE ROLLING [None]
  - LOSS OF CONSCIOUSNESS [None]
  - OCULAR HYPERAEMIA [None]
  - SWOLLEN TONGUE [None]
  - TREMOR [None]
